FAERS Safety Report 20955298 (Version 2)
Quarter: 2024Q3

REPORT INFORMATION
  Report Type: Spontaneous
  Country: US (occurrence: US)
  Receive Date: 20220614
  Receipt Date: 20240712
  Transmission Date: 20241016
  Serious: No
  Sender: PIERRE FABRE MEDICAMENT
  Company Number: US-PFM-2022-02482

PATIENT
  Sex: Female
  Weight: 4.082 kg

DRUGS (3)
  1. HEMANGEOL [Suspect]
     Active Substance: PROPRANOLOL HYDROCHLORIDE
     Indication: Haemangioma
     Dosage: 0.6 ML BY MOUTH 2 TIMES DAILY FOR 1 WEEK
     Route: 048
  2. HEMANGEOL [Suspect]
     Active Substance: PROPRANOLOL HYDROCHLORIDE
     Dosage: 1.2ML BY MOUTH 2 TIMES DAILY FOR 1 WEEK
     Route: 048
  3. HEMANGEOL [Suspect]
     Active Substance: PROPRANOLOL HYDROCHLORIDE
     Dosage: 1.6 BY MOUTH 2 TIMES DAILY FOR MANINTENANCE DOSING
     Route: 048

REACTIONS (1)
  - Decreased appetite [Unknown]
